FAERS Safety Report 5154768-X (Version None)
Quarter: 2006Q4

REPORT INFORMATION
  Report Type: 
  Country: None (occurrence: None)
  Receive Date: 20061121
  Receipt Date: 20061114
  Transmission Date: 20070319
  Serious: Yes (Hospitalization, Other)
  Sender: FDA-Public Use
  Company Number: US-JNJFOC-20061003699

PATIENT
  Sex: Female
  Weight: 51.26 kg

DRUGS (3)
  1. REMICADE [Suspect]
     Indication: RHEUMATOID ARTHRITIS
     Route: 042
  2. METHOTREXATE [Concomitant]
  3. DAYPRO [Concomitant]
     Dosage: 1-2 DAILY

REACTIONS (2)
  - FALL [None]
  - LUNG ADENOCARCINOMA [None]
